FAERS Safety Report 24679106 (Version 1)
Quarter: 2024Q4

REPORT INFORMATION
  Report Type: Spontaneous
  Country: US (occurrence: US)
  Receive Date: 20241129
  Receipt Date: 20241129
  Transmission Date: 20250114
  Serious: No
  Sender: ROCHE
  Company Number: US-ROCHE-10000139915

PATIENT
  Sex: Male
  Weight: 130 kg

DRUGS (1)
  1. ACTIVASE [Suspect]
     Active Substance: ALTEPLASE
     Indication: Product used for unknown indication
     Route: 065
     Dates: start: 20241121

REACTIONS (3)
  - Product preparation error [Unknown]
  - No adverse event [Unknown]
  - Off label use [Unknown]
